FAERS Safety Report 14290519 (Version 1)
Quarter: 2017Q4

REPORT INFORMATION
  Report Type: Spontaneous
  Country: US (occurrence: US)
  Receive Date: 20171215
  Receipt Date: 20171215
  Transmission Date: 20180321
  Serious: No
  Sender: FDA-Public Use
  Company Number: US-ENDO PHARMACEUTICALS INC-2017-003017

PATIENT
  Age: 42 Year
  Sex: Male
  Weight: 173.7 kg

DRUGS (5)
  1. PRISTIQ EXTENDED-RELEASE [Concomitant]
     Active Substance: DESVENLAFAXINE SUCCINATE
     Indication: DEPRESSION
  2. TESTIM [Suspect]
     Active Substance: TESTOSTERONE
     Indication: BLOOD TESTOSTERONE DECREASED
     Dosage: 50 MG (1 TUBE), APPLY TO SHOULDERS AND ARMS
     Route: 062
     Dates: start: 20170518, end: 20170518
  3. BENICAR HCT [Concomitant]
     Active Substance: HYDROCHLOROTHIAZIDE\OLMESARTAN MEDOXOMIL
     Indication: HYPERTENSION
  4. WELLBUTRIN [Concomitant]
     Active Substance: BUPROPION HYDROCHLORIDE
     Indication: DEPRESSION
  5. HYDROCHLOROTHIAZIDE TABLETS 25 MG [Concomitant]
     Active Substance: HYDROCHLOROTHIAZIDE
     Indication: HYPERTENSION

REACTIONS (3)
  - Pruritus [Unknown]
  - Product odour abnormal [Not Recovered/Not Resolved]
  - Lacrimation increased [Unknown]

NARRATIVE: CASE EVENT DATE: 20170518
